FAERS Safety Report 4682245-9 (Version None)
Quarter: 2005Q2

REPORT INFORMATION
  Report Type: 
  Country: None (occurrence: None)
  Receive Date: 20050606
  Receipt Date: 20050527
  Transmission Date: 20051028
  Serious: Yes (Hospitalization)
  Sender: FDA-Public Use
  Company Number: FR-AMGEN-UK136450

PATIENT
  Age: 76 Year
  Sex: Male

DRUGS (7)
  1. ARANESP [Suspect]
     Indication: PRE-EXISTING DISEASE
     Route: 058
     Dates: start: 20040715, end: 20050324
  2. GRANOCYTE [Suspect]
     Route: 042
     Dates: start: 20040915, end: 20050314
  3. ASPIRIN [Concomitant]
     Route: 048
  4. RABEPRAZOLE SODIUM [Concomitant]
     Route: 048
  5. DIAMICRON [Concomitant]
     Route: 048
  6. CORDARONE [Concomitant]
     Route: 048
  7. FONZYLANE [Concomitant]
     Route: 065

REACTIONS (3)
  - BACK PAIN [None]
  - BLOOD DISORDER [None]
  - SCIATICA [None]
